FAERS Safety Report 5368591-4 (Version None)
Quarter: 2007Q2

REPORT INFORMATION
  Report Type: 
  Country: None (occurrence: None)
  Receive Date: 20070625
  Receipt Date: 20070614
  Transmission Date: 20071010
  Serious: Yes (Hospitalization, Other)
  Sender: FDA-Public Use
  Company Number: US-JNJFOC-20060904265

PATIENT
  Sex: Female
  Weight: 61.69 kg

DRUGS (1)
  1. ORTHO EVRA [Suspect]
     Indication: CONTRACEPTION
     Route: 062
     Dates: start: 20040901, end: 20041208

REACTIONS (2)
  - CEREBROVASCULAR ACCIDENT [None]
  - RETINAL VEIN OCCLUSION [None]
